FAERS Safety Report 4491799-7 (Version None)
Quarter: 2004Q4

REPORT INFORMATION
  Report Type: 
  Country: None (occurrence: None)
  Receive Date: 20041101
  Receipt Date: 20041022
  Transmission Date: 20050328
  Serious: Yes (Other)
  Sender: FDA-Public Use
  Company Number: 2004-10-1484

PATIENT
  Age: 66 Year
  Sex: Male

DRUGS (1)
  1. INTRON A [Suspect]
     Indication: HAIRY CELL LEUKAEMIA
     Dosage: SUBCUTANEOUS
     Route: 058

REACTIONS (1)
  - COLON CANCER [None]
